FAERS Safety Report 6231686-7 (Version None)
Quarter: 2009Q2

REPORT INFORMATION
  Report Type: 
  Country: None (occurrence: None)
  Receive Date: 20090616
  Receipt Date: 20090605
  Transmission Date: 20091009
  Serious: Yes (Other)
  Sender: FDA-Public Use
  Company Number: US-MERCK-0802USA03899

PATIENT
  Age: 67 Year
  Sex: Male

DRUGS (6)
  1. FOSAMAX [Suspect]
     Indication: OSTEOPOROSIS
     Route: 048
     Dates: start: 19990101, end: 20060101
  2. FOSAMAX [Suspect]
     Route: 048
     Dates: start: 19990101, end: 20010101
  3. FOSAMAX [Suspect]
     Route: 048
     Dates: start: 19990101, end: 20010101
  4. FOSAMAX [Suspect]
     Route: 048
     Dates: start: 19980101, end: 20070201
  5. FOSAMAX [Suspect]
     Route: 048
     Dates: start: 19990101, end: 20010101
  6. AVAPRO [Concomitant]
     Indication: HYPERTENSION
     Route: 065
     Dates: start: 19980101

REACTIONS (14)
  - COUGH [None]
  - DYSPNOEA EXERTIONAL [None]
  - FATIGUE [None]
  - FRACTURE [None]
  - GYNAECOMASTIA [None]
  - HYPERCALCAEMIA [None]
  - INAPPROPRIATE SCHEDULE OF DRUG ADMINISTRATION [None]
  - IRON DEFICIENCY ANAEMIA [None]
  - NEOPLASM MALIGNANT [None]
  - NEOPLASM PROSTATE [None]
  - OSTEONECROSIS [None]
  - OVERDOSE [None]
  - RECTAL HAEMORRHAGE [None]
  - SINUS CONGESTION [None]
